FAERS Safety Report 5932475-0 (Version None)
Quarter: 2008Q4

REPORT INFORMATION
  Report Type: 
  Country: None (occurrence: None)
  Receive Date: 20081028
  Receipt Date: 20081017
  Transmission Date: 20090506
  Serious: Yes (Hospitalization)
  Sender: FDA-Public Use
  Company Number: FR-WYE-H06487308

PATIENT
  Sex: Male

DRUGS (4)
  1. PANTOPRAZOLE SODIUM [Suspect]
     Route: 048
     Dates: end: 20080914
  2. COVERSYL [Suspect]
     Route: 048
     Dates: end: 20080914
  3. ATARAX [Concomitant]
     Dosage: UNKNOWN
     Route: 048
  4. TRILEPTAL [Suspect]
     Route: 048
     Dates: end: 20080914

REACTIONS (6)
  - COMA [None]
  - EPILEPSY [None]
  - HYPONATRAEMIA [None]
  - LABILE BLOOD PRESSURE [None]
  - TACHYCARDIA [None]
  - VOMITING [None]
